FAERS Safety Report 25545616 (Version 1)
Quarter: 2025Q3

REPORT INFORMATION
  Report Type: Spontaneous
  Country: EU (occurrence: EU)
  Receive Date: 20250712
  Receipt Date: 20250712
  Transmission Date: 20251021
  Serious: Yes (Other)
  Sender: ASCEND THERAPEUTICS US, LLC
  Company Number: EU-Ascend Therapeutics US, LLC-2180388

PATIENT
  Age: 67 Year
  Sex: Male

DRUGS (6)
  1. ANDROGEL [Suspect]
     Active Substance: TESTOSTERONE
     Indication: Androgen deficiency
  2. TESTOSTERONE [Suspect]
     Active Substance: TESTOSTERONE
  3. ALLOPURINOL [Concomitant]
     Active Substance: ALLOPURINOL
  4. LERCANIDIPINE [Concomitant]
     Active Substance: LERCANIDIPINE
  5. SPIRONOLACTONE [Concomitant]
     Active Substance: SPIRONOLACTONE
  6. Candesartan comp. 32/25 [Concomitant]

REACTIONS (1)
  - Rheumatoid arthritis [Not Recovered/Not Resolved]

NARRATIVE: CASE EVENT DATE: 20250408
